FAERS Safety Report 6565980-7 (Version None)
Quarter: 2010Q1

REPORT INFORMATION
  Report Type: 
  Country: None (occurrence: None)
  Receive Date: 20100201
  Receipt Date: 20091130
  Transmission Date: 20100710
  Serious: No
  Sender: FDA-Public Use
  Company Number: US-ALLERGAN-0916497US

PATIENT
  Age: 80 Year
  Sex: Male

DRUGS (9)
  1. ACUVAIL [Suspect]
     Indication: MACULAR OEDEMA
     Dosage: UNK
     Route: 047
     Dates: start: 20091121, end: 20091122
  2. ACUVAIL [Suspect]
     Dosage: UNK
     Route: 047
     Dates: start: 20091123, end: 20091127
  3. ACUVAIL [Suspect]
     Dosage: UNK
     Route: 047
     Dates: start: 20091201
  4. FEXOFENADINE [Concomitant]
  5. AVODART [Concomitant]
  6. CRESTOR [Concomitant]
  7. RAMIPRIL [Concomitant]
  8. LANTUS [Concomitant]
     Dosage: LONG LASTING THROUGHOUT DAY
  9. HUMALOG [Concomitant]
     Dosage: SHORT LASTING - 2 HOURS

REACTIONS (1)
  - BLOOD GLUCOSE INCREASED [None]
